FAERS Safety Report 5815591-3 (Version None)
Quarter: 2008Q3

REPORT INFORMATION
  Report Type: 
  Country: None (occurrence: None)
  Receive Date: 20080718
  Receipt Date: 20080710
  Transmission Date: 20090109
  Serious: Yes (Hospitalization)
  Sender: FDA-Public Use
  Company Number: AU-PFIZER INC-2008059150

PATIENT
  Sex: Male
  Weight: 99 kg

DRUGS (5)
  1. MARAVIROC [Suspect]
     Indication: HIV INFECTION
     Route: 048
  2. RALTEGRAVIR [Suspect]
     Indication: HIV INFECTION
     Route: 048
  3. ETRAVIRINE [Suspect]
     Indication: HIV INFECTION
     Route: 048
  4. TENOFOVIR [Suspect]
     Indication: HIV INFECTION
     Route: 048
  5. ABACAVIR SULFATE/LAMIVUDINE [Suspect]
     Indication: HIV INFECTION
     Route: 048

REACTIONS (1)
  - POLYARTHRITIS [None]
